FAERS Safety Report 4971907-1 (Version None)
Quarter: 2006Q2

REPORT INFORMATION
  Report Type: 
  Country: None (occurrence: None)
  Receive Date: 20060412
  Receipt Date: 20060412
  Transmission Date: 20061013
  Serious: Yes (Hospitalization)
  Sender: FDA-Public Use
  Company Number: None

PATIENT
  Age: 48 Year
  Sex: Female
  Weight: 66.6788 kg

DRUGS (3)
  1. CU-7 [Suspect]
     Indication: INFERTILITY FEMALE
     Dates: start: 19840527, end: 20020320
  2. CU-7 [Suspect]
     Indication: IUCD COMPLICATION
     Dates: start: 19840527, end: 20020320
  3. CU-7 [Suspect]
     Indication: UTERINE DISORDER
     Dates: start: 19840527, end: 20020320

REACTIONS (6)
  - HEADACHE [None]
  - INFERTILITY FEMALE [None]
  - IUCD COMPLICATION [None]
  - IUD MIGRATION [None]
  - UTERINE DISORDER [None]
  - UTERINE PERFORATION [None]
